FAERS Safety Report 23596854 (Version 1)
Quarter: 2024Q1

REPORT INFORMATION
  Report Type: Spontaneous
  Country: US (occurrence: US)
  Receive Date: 20240305
  Receipt Date: 20240305
  Transmission Date: 20240409
  Serious: Yes (Other)
  Sender: FDA-Public Use
  Company Number: US-IBSA PHARMA INC.-2023IBS000836

PATIENT

DRUGS (1)
  1. DICLOFENAC EPOLAMINE [Suspect]
     Active Substance: DICLOFENAC EPOLAMINE
     Indication: Pain
     Dosage: UNK
     Route: 065

REACTIONS (4)
  - Chronic kidney disease [None]
  - Cerebrovascular accident [Unknown]
  - Renal function test abnormal [Unknown]
  - Contraindicated product administered [Unknown]
